FAERS Safety Report 4501718-2 (Version None)
Quarter: 2004Q4

REPORT INFORMATION
  Report Type: 
  Country: None (occurrence: None)
  Receive Date: 20041109
  Receipt Date: 20041022
  Transmission Date: 20050328
  Serious: Yes (Hospitalization)
  Sender: FDA-Public Use
  Company Number: S04-ESP-07168-01

PATIENT
  Age: 84 Year
  Sex: Male

DRUGS (6)
  1. ESCITALOPRAM [Suspect]
     Indication: DEPRESSION
     Dosage: 10 MG QD PO
     Route: 048
     Dates: end: 20040913
  2. TAMSULOSINE (TAMSULOSIN) [Concomitant]
  3. DIOSMINE/ HESPERIDINE [Concomitant]
  4. BETAHISTINE [Concomitant]
  5. TIMOLOL MALEATE [Concomitant]
  6. LORMETAZEPAM [Concomitant]

REACTIONS (1)
  - HYPONATRAEMIA [None]
